FAERS Safety Report 23897935 (Version 1)
Quarter: 2024Q2

REPORT INFORMATION
  Report Type: Spontaneous
  Country: CN (occurrence: None)
  Receive Date: 20240524
  Receipt Date: 20240524
  Transmission Date: 20240716
  Serious: Yes (Hospitalization)
  Sender: FDA-Public Use
  Company Number: 2024A118783

PATIENT
  Age: 1973 Day
  Sex: Female
  Weight: 17 kg

DRUGS (4)
  1. BUDESONIDE [Suspect]
     Active Substance: BUDESONIDE
     Indication: Product used for unknown indication
     Route: 055
     Dates: start: 20240511, end: 20240516
  2. CEFOPERAZONE SODIUM\SULBACTAM SODIUM [Suspect]
     Active Substance: CEFOPERAZONE SODIUM\SULBACTAM SODIUM
     Indication: Infection prophylaxis
     Route: 041
     Dates: start: 20240513, end: 20240516
  3. MEZLOCILLIN [Concomitant]
     Active Substance: MEZLOCILLIN
     Indication: Infection prophylaxis
     Route: 041
  4. AMBROXOL [Concomitant]
     Active Substance: AMBROXOL
     Indication: Productive cough
     Route: 041

REACTIONS (2)
  - Cyanosis [Recovering/Resolving]
  - Dysphoria [Recovering/Resolving]

NARRATIVE: CASE EVENT DATE: 20240516
